FAERS Safety Report 9695817 (Version 1)
Quarter: 2013Q4

REPORT INFORMATION
  Report Type: Spontaneous
  Country: US (occurrence: None)
  Receive Date: 20131118
  Receipt Date: 20131118
  Transmission Date: 20140711
  Serious: Yes (Other)
  Sender: FDA-Public Use
  Company Number: None

PATIENT
  Age: 48 Year
  Sex: Female
  Weight: 81.65 kg

DRUGS (4)
  1. MIRVASO [Suspect]
     Indication: ERYTHEMA
     Dosage: TOPICAL APPLICATION
     Route: 061
     Dates: start: 20131030, end: 20131104
  2. OTC ZYRTEC [Concomitant]
  3. ORAL MINOCYCLINE [Concomitant]
  4. ORAL BENADRYL [Concomitant]

REACTIONS (4)
  - Rebound effect [None]
  - Pallor [None]
  - Application site erythema [None]
  - Flushing [None]
